FAERS Safety Report 24867899 (Version 1)
Quarter: 2025Q1

REPORT INFORMATION
  Report Type: Spontaneous
  Country: US (occurrence: None)
  Receive Date: 20250117
  Receipt Date: 20250117
  Transmission Date: 20250408
  Serious: No
  Sender: FDA-CTU
  Company Number: None

PATIENT
  Age: 3 Year
  Sex: Female
  Weight: 14.1 kg

DRUGS (1)
  1. HEMANGEOL [Suspect]
     Active Substance: PROPRANOLOL HYDROCHLORIDE
     Indication: Haemangioma
     Dosage: 4 MG TWICE A DAY ORAL
     Route: 048
     Dates: start: 20220531, end: 20240708

REACTIONS (1)
  - Vomiting [None]

NARRATIVE: CASE EVENT DATE: 20240731
